FAERS Safety Report 8049534-1 (Version None)
Quarter: 2011Q4

REPORT INFORMATION
  Report Type: 
  Country: None (occurrence: None)
  Receive Date: 20111229
  Receipt Date: 20111215
  Transmission Date: 20120403
  Serious: Yes (Hospitalization)
  Sender: FDA-Public Use
  Company Number: 2011PROUSA00869

PATIENT
  Age: 79 Year
  Sex: Male

DRUGS (2)
  1. PROVENGE [Suspect]
     Dosage: 250 ML, SINGLE, INTRAVENOUS
     Route: 042
     Dates: start: 20111121, end: 20111121
  2. PROVENGE [Suspect]
     Indication: PROSTATE CANCER METASTATIC
     Dosage: 250 ML, SINGLE, INTRAVENOUS
     Route: 042
     Dates: start: 20111107, end: 20111107

REACTIONS (4)
  - DEHYDRATION [None]
  - ASTHENIA [None]
  - OEDEMA PERIPHERAL [None]
  - FALL [None]
